FAERS Safety Report 15417001 (Version 3)
Quarter: 2019Q4

REPORT INFORMATION
  Report Type: Report from Study
  Country: IT (occurrence: IT)
  Receive Date: 20180924
  Receipt Date: 20191206
  Transmission Date: 20200122
  Serious: Yes (Other)
  Sender: FDA-Public Use
  Company Number: IT-AUROBINDO-AUR-APL-2018-000319

PATIENT
  Age: 70 Year
  Sex: Male
  Weight: 59 kg

DRUGS (29)
  1. BEVACIZUMAB. [Suspect]
     Active Substance: BEVACIZUMAB
     Dosage: 7.5 MILLIGRAM/KILOGRAM (ON D1 OF THE 3-WEEKLY CYCLE, FOR 7 CYCLES)
     Route: 065
     Dates: start: 201204
  2. BEVACIZUMAB. [Suspect]
     Active Substance: BEVACIZUMAB
     Dosage: 7.5 MILLIGRAM/KILOGRAM, CYCLICAL (7.5 MILLIGRAM/KILOGRAM, ON D1 OF THE 3-WEEKLY CYCLE, FOR 7 CYCLES)
     Route: 065
     Dates: start: 201312
  3. CAPECITABINE. [Suspect]
     Active Substance: CAPECITABINE
     Indication: ADENOCARCINOMA OF COLON
     Dosage: 1000 MILLIGRAM/SQ. METER, ONCE A DAY (ON D1-14 Q3W, FOR 7 CYCLES REDUCED)
     Route: 065
     Dates: start: 201204, end: 201312
  4. FOLINIC ACID [Suspect]
     Active Substance: LEUCOVORIN
     Indication: ADENOCARCINOMA OF COLON
     Dosage: 200 MILLIGRAM/SQ. METER,QOW
     Route: 065
     Dates: start: 200908, end: 200911
  5. FLUOROURACIL. [Suspect]
     Active Substance: FLUOROURACIL
     Dosage: 400 MILLIGRAM/SQ. METER (D1:400/MG/M^2, THEN 2400 MG/M^2)
     Route: 040
     Dates: start: 201410, end: 201501
  6. LEUCOVORIN. [Suspect]
     Active Substance: LEUCOVORIN
     Dosage: 200 MILLIGRAM/SQ. METER, 2 WEEK
     Route: 065
     Dates: start: 201410, end: 201501
  7. OXALIPLATIN. [Suspect]
     Active Substance: OXALIPLATIN
     Indication: ADENOCARCINOMA OF COLON
     Dosage: UNK
     Route: 065
     Dates: start: 200908, end: 200911
  8. BEVACIZUMAB. [Suspect]
     Active Substance: BEVACIZUMAB
     Dosage: 7.5 UNK, CYCLICAL
     Route: 065
     Dates: start: 201204
  9. FOLINIC ACID [Suspect]
     Active Substance: LEUCOVORIN
     Dosage: 200 MILLIGRAM/SQ. METER, QOW
     Route: 065
     Dates: start: 201410, end: 201410
  10. FLUOROURACIL. [Suspect]
     Active Substance: FLUOROURACIL
     Dosage: 400 MILLIGRAM/SQ. METER (D1:400/MG/M^2, THEN 2400 MG/M^2)
     Route: 040
     Dates: start: 201410, end: 201501
  11. PANITUMUMAB [Suspect]
     Active Substance: PANITUMUMAB
     Dosage: UNK 60% OF THE ORIGINAL DOSE, 3 WEEK
     Route: 065
     Dates: start: 201506
  12. IRINOTECAN CONCENTRATE FOR SOLUTION FOR INFUSION [Suspect]
     Active Substance: IRINOTECAN
     Indication: ADENOCARCINOMA OF COLON
     Dosage: 180 MILLIGRAM/SQ. METER, 2 WEEKS
     Route: 065
     Dates: start: 201410, end: 201410
  13. BEVACIZUMAB. [Suspect]
     Active Substance: BEVACIZUMAB
     Indication: ADENOCARCINOMA OF COLON
     Dosage: 7.5 MILLIGRAM/KILOGRAM, CYCLICAL
     Route: 065
     Dates: start: 201204
  14. FOLINIC ACID [Suspect]
     Active Substance: LEUCOVORIN
     Dosage: 200 MILLIGRAM/SQ. METER, QOW
     Route: 065
     Dates: start: 201501, end: 201501
  15. PANITUMUMAB [Suspect]
     Active Substance: PANITUMUMAB
     Indication: ADENOCARCINOMA OF COLON
     Dosage: 6 MILLIGRAM/KILOGRAM (ON DAY 1)
     Route: 065
     Dates: start: 201410
  16. PANITUMUMAB [Suspect]
     Active Substance: PANITUMUMAB
     Dosage: 3.6 MILLIGRAM/KILOGRAM (60% OF THE ORIGINAL DOSE, 3 WEEK)
     Route: 042
     Dates: start: 20150601, end: 20150601
  17. IRINOTECAN CONCENTRATE FOR SOLUTION FOR INFUSION [Suspect]
     Active Substance: IRINOTECAN
     Dosage: 180 MILLIGRAM/SQ. METER,  2 WEEKS
     Route: 065
     Dates: start: 201410, end: 201501
  18. IRINOTECAN CONCENTRATE FOR SOLUTION FOR INFUSION [Suspect]
     Active Substance: IRINOTECAN
     Dosage: 180 MILLIGRAM/SQ. METER, 2 WEEKS
     Route: 065
     Dates: start: 201501, end: 201501
  19. OXALIPLATIN. [Suspect]
     Active Substance: OXALIPLATIN
     Dosage: 130 MILLIGRAM/SQ. METER (ON DAY 1, FOR 7 CYCLES)
     Route: 065
     Dates: start: 20120401
  20. FLUOROURACIL. [Suspect]
     Active Substance: FLUOROURACIL
     Indication: ADENOCARCINOMA OF COLON
     Dosage: UNK
     Route: 065
     Dates: start: 200908, end: 200909
  21. BEVACIZUMAB. [Suspect]
     Active Substance: BEVACIZUMAB
     Dosage: 7.5 MILLIGRAM/KILOGRAM (ON D1 OF THE 3-WEEKLY CYCLE, FOR 7 CYCLES)Q
     Route: 065
     Dates: start: 201312
  22. FOLINIC ACID [Suspect]
     Active Substance: LEUCOVORIN
     Dosage: 200 MILLIGRAM/SQ. METER (AS A 2-H INFUSION ON DAY 1)
     Route: 065
     Dates: start: 201410, end: 201501
  23. GEMCITABINE. [Suspect]
     Active Substance: GEMCITABINE
     Indication: PANCREATIC NEOPLASM
     Dosage: 175 MILLIGRAM, CYCLICAL
     Route: 042
     Dates: start: 20190917, end: 20190917
  24. LEUCOVORIN. [Suspect]
     Active Substance: LEUCOVORIN
     Indication: ADENOCARCINOMA OF COLON
     Dosage: UNK
     Route: 065
     Dates: start: 200908, end: 200911
  25. PANITUMUMAB [Suspect]
     Active Substance: PANITUMUMAB
     Dosage: 6 MILLIGRAM/KILOGRAM, 2 WEEK (EVERY 14 DAYS)
     Route: 016
     Dates: start: 201410, end: 201506
  26. PANITUMUMAB [Suspect]
     Active Substance: PANITUMUMAB
     Dosage: 6 MILLIGRAM/KILOGRAM, 2 WEEK (EVERY 14 DAYS)
     Route: 065
     Dates: start: 201410, end: 201506
  27. PANITUMUMAB [Suspect]
     Active Substance: PANITUMUMAB
     Dosage: 6 MILLIGRAM/KILOGRAM, 2 WEEK (EVERY 14 DAYS)
     Route: 065
     Dates: start: 201410, end: 201505
  28. PANITUMUMAB [Suspect]
     Active Substance: PANITUMUMAB
     Dosage: 3.6 MILLIGRAM/KILOGRAM (60% OF THE ORIGINAL DOSE, 3 WEEK)
     Route: 042
     Dates: start: 201506, end: 201506
  29. PACLITAXEL. [Concomitant]
     Active Substance: PACLITAXEL
     Indication: PANCREATIC NEOPLASM
     Dosage: 1400 MILLIGRAM, CYCLICAL
     Route: 042
     Dates: start: 20190917

REACTIONS (9)
  - Neuropathy peripheral [Unknown]
  - Skin toxicity [Unknown]
  - Diarrhoea [Unknown]
  - Neutropenia [Unknown]
  - Palmar-plantar erythrodysaesthesia syndrome [Unknown]
  - Nausea [Recovering/Resolving]
  - Drug effective for unapproved indication [Unknown]
  - Asthenia [Unknown]
  - Off label use [Unknown]

NARRATIVE: CASE EVENT DATE: 20141001
